FAERS Safety Report 8435996-4 (Version None)
Quarter: 2012Q2

REPORT INFORMATION
  Report Type: 
  Country: None (occurrence: None)
  Receive Date: 20120606
  Receipt Date: 20120606
  Transmission Date: 20120825
  Serious: Yes (Death)
  Sender: FDA-Public Use
  Company Number: None

PATIENT
  Age: 90 Year
  Sex: Male

DRUGS (2)
  1. AVASTIN [Suspect]
     Indication: RETINAL VEIN OCCLUSION
     Dosage: 1 EVERY SIX WEEKS INTRAOCULAR
     Route: 031
     Dates: start: 20090507, end: 20110404
  2. LUCENTIS [Suspect]
     Indication: RETINAL VEIN OCCLUSION
     Dosage: 1 EVERY FOUR WEEKS INTRAOCULAR
     Route: 031
     Dates: start: 20110509, end: 20120214

REACTIONS (1)
  - DEATH [None]
